FAERS Safety Report 5150627-7 (Version None)
Quarter: 2006Q4

REPORT INFORMATION
  Report Type: 
  Country: None (occurrence: None)
  Receive Date: 20061110
  Receipt Date: 20061110
  Transmission Date: 20070319
  Serious: No
  Sender: FDA-Public Use
  Company Number: None

PATIENT
  Sex: Male
  Weight: 83.0083 kg

DRUGS (1)
  1. PAIN RELIEF    EXTRA STRENGTH (ACETAMINOPHEN)   TOP CARE [Suspect]
     Indication: HEADACHE
     Dosage: 2 CAPLETS  ONCE DAILY  PO
     Route: 048

REACTIONS (5)
  - APHTHOUS STOMATITIS [None]
  - GLOSSODYNIA [None]
  - ORAL INTAKE REDUCED [None]
  - ORAL MUCOSAL EXFOLIATION [None]
  - ORAL PAIN [None]
